FAERS Safety Report 8725592 (Version 3)
Quarter: 2012Q4

REPORT INFORMATION
  Report Type: Report from Study
  Country: JP (occurrence: JP)
  Receive Date: 20120815
  Receipt Date: 20120907
  Transmission Date: 20130627
  Serious: Yes (Hospitalization)
  Sender: FDA-Public Use
  Company Number: JP-PFIZER INC-2012178138

PATIENT
  Age: 88 Year
  Sex: Female
  Weight: 35.9 kg

DRUGS (16)
  1. BAPINEUZUMAB [Suspect]
     Indication: DEMENTIA ALZHEIMER^S TYPE
     Dosage: blinded dose
     Route: 051
     Dates: start: 20101130, end: 20101130
  2. BAPINEUZUMAB [Suspect]
     Dosage: blinded dose
     Route: 051
     Dates: start: 20110222, end: 20110222
  3. BAPINEUZUMAB [Suspect]
     Dosage: blinded dose
     Route: 051
     Dates: start: 20110531, end: 20110531
  4. BAPINEUZUMAB [Suspect]
     Dosage: blinded dose
     Route: 051
     Dates: start: 20110830, end: 20110830
  5. BAPINEUZUMAB [Suspect]
     Dosage: blinded dose
     Route: 051
     Dates: start: 20111122, end: 20111122
  6. BAPINEUZUMAB [Suspect]
     Dosage: blinded dose
     Route: 051
     Dates: start: 20120221, end: 20120221
  7. BAPINEUZUMAB [Suspect]
     Dosage: blinded dose
     Route: 051
     Dates: start: 20120522, end: 20120522
  8. CELECOXIB [Concomitant]
     Indication: OSTEOARTHRITIS
     Dosage: UNK
     Dates: start: 20110113
  9. CELECOXIB [Concomitant]
     Indication: COMPRESSION FRACTURE
  10. DONEPEZIL HYDROCHLORIDE [Concomitant]
     Indication: DEMENTIA ALZHEIMER^S TYPE
     Dosage: UNK
     Dates: start: 20120125
  11. EXTRACT FORM CUTNEOUS TISSUE OF RABBIT INOCULATED WITH VACCINIA VIRUS [Concomitant]
     Indication: HERPES ZOSTER
     Dosage: UNK
     Dates: start: 20100709
  12. LIDOCAINE HYDROCHLORIDE [Concomitant]
     Indication: HERPES ZOSTER
     Dosage: UNK
     Dates: start: 20100709
  13. GOSHAJINKIGAN [Concomitant]
     Indication: HERPES ZOSTER
     Dosage: UNK
     Dates: start: 20100713
  14. REBAMIPIDE [Concomitant]
     Indication: PROPHYLAXIS AGAINST GASTROINTESTINAL ULCER
     Dosage: UNK
     Dates: start: 20110308
  15. TAGAMET [Concomitant]
     Indication: PROPHYLAXIS AGAINST GASTROINTESTINAL ULCER
     Dosage: UNK
  16. AMLODIPINE BESILATE [Concomitant]
     Indication: HYPERTENSION
     Dosage: UNK

REACTIONS (1)
  - Gastric cancer [Recovering/Resolving]
